FAERS Safety Report 17024015 (Version 2)
Quarter: 2020Q1

REPORT INFORMATION
  Report Type: Other
  Country: DE (occurrence: DE)
  Receive Date: 20191113
  Receipt Date: 20200110
  Transmission Date: 20200409
  Serious: Yes (Other)
  Sender: FDA-Public Use
  Company Number: DE-LUPIN PHARMACEUTICALS INC.-2019-06709

PATIENT
  Age: 30 Year
  Sex: Male
  Weight: 76 kg

DRUGS (5)
  1. PAROXETINE. [Suspect]
     Active Substance: PAROXETINE
     Indication: DEPRESSION
  2. PAROXETINE. [Suspect]
     Active Substance: PAROXETINE
     Indication: ANXIETY DISORDER
  3. SERTRALINE [Suspect]
     Active Substance: SERTRALINE HYDROCHLORIDE
     Indication: DEPRESSION
  4. SERTRALINE [Suspect]
     Active Substance: SERTRALINE HYDROCHLORIDE
     Indication: ANXIETY DISORDER
     Dosage: 50 MILLIGRAM, UNK
     Route: 048
     Dates: start: 20150409, end: 2017
  5. PAROXETINE. [Suspect]
     Active Substance: PAROXETINE
     Indication: EJACULATION DISORDER
     Dosage: 20 MILLIGRAM, UNK
     Route: 048
     Dates: start: 20130717, end: 20150416

REACTIONS (9)
  - Libido decreased [Not Recovered/Not Resolved]
  - Orgasm abnormal [Unknown]
  - Anhedonia [Unknown]
  - Disturbance in attention [Unknown]
  - Erectile dysfunction [Not Recovered/Not Resolved]
  - Aggression [Unknown]
  - Product use in unapproved indication [Unknown]
  - Adverse drug reaction [Unknown]
  - Male orgasmic disorder [Unknown]

NARRATIVE: CASE EVENT DATE: 20130717
